FAERS Safety Report 8028831 (Version 3)
Quarter: 2013Q4

REPORT INFORMATION
  Report Type: Spontaneous
  Country: US (occurrence: US)
  Receive Date: 20110711
  Receipt Date: 20131001
  Transmission Date: 20140711
  Serious: Yes (Hospitalization)
  Sender: FDA-Public Use
  Company Number: US-GLAXOSMITHKLINE-A0903033A

PATIENT
  Sex: Female
  Weight: 92.7 kg

DRUGS (9)
  1. AVANDIA [Suspect]
     Indication: DIABETES MELLITUS
     Dosage: 4MG PER DAY
     Route: 048
     Dates: start: 199906, end: 199908
  2. CARDIZEM [Concomitant]
  3. ASPIRIN [Concomitant]
  4. GLUCOPHAGE [Concomitant]
  5. MICRONASE [Concomitant]
  6. IMDUR [Concomitant]
  7. PRILOSEC [Concomitant]
  8. TENORMIN [Concomitant]
  9. LIPITOR [Concomitant]

REACTIONS (3)
  - Angina unstable [Unknown]
  - Ischaemia [Unknown]
  - Cardiac failure congestive [Unknown]
